FAERS Safety Report 24238058 (Version 2)
Quarter: 2024Q4

REPORT INFORMATION
  Report Type: Spontaneous
  Country: BR (occurrence: BR)
  Receive Date: 20240822
  Receipt Date: 20241014
  Transmission Date: 20250115
  Serious: Yes (Other)
  Sender: DR REDDYS
  Company Number: BR-BRA-SPO/BRA/24/0011902

PATIENT
  Age: 66 Year
  Sex: Male
  Weight: 86 kg

DRUGS (1)
  1. METOPROLOL SUCCINATE [Suspect]
     Active Substance: METOPROLOL SUCCINATE
     Indication: Hypertension
     Dosage: 2 TABLETS A DAY (ONE IN THE MORNING AND ANOTHER BEOFORE SLEEP) 1 TABLET EVERY 12 HOURS
     Route: 048
     Dates: start: 20240824

REACTIONS (4)
  - Hypertension [Unknown]
  - Pollakiuria [Unknown]
  - Drug ineffective [Unknown]
  - Headache [Unknown]
